FAERS Safety Report 18557136 (Version 1)
Quarter: 2020Q4

REPORT INFORMATION
  Report Type: Spontaneous
  Country: CA (occurrence: CA)
  Receive Date: 20201129
  Receipt Date: 20201129
  Transmission Date: 20210114
  Serious: Yes (Other)
  Sender: FDA-Public Use
  Company Number: CA-TEVA-2020-CA-1852324

PATIENT
  Sex: Female

DRUGS (2)
  1. TEVA-TAMOXIFEN 20 MG [Suspect]
     Active Substance: TAMOXIFEN
  2. MILK THISTLE SEEDS (HERBAL SUPPLEMENT) [Suspect]
     Active Substance: DIETARY SUPPLEMENT\HERBALS\MILK THISTLE
     Route: 065

REACTIONS (6)
  - Blood bilirubin increased [Unknown]
  - Cold type haemolytic anaemia [Unknown]
  - Hot flush [Unknown]
  - Food interaction [Unknown]
  - Drug level increased [Unknown]
  - Hyperhidrosis [Unknown]
